FAERS Safety Report 10046989 (Version 3)
Quarter: 2014Q3

REPORT INFORMATION
  Report Type: Report from Study
  Country: JP (occurrence: JP)
  Receive Date: 20140331
  Receipt Date: 20140722
  Transmission Date: 20150326
  Serious: Yes (Hospitalization)
  Sender: FDA-Public Use
  Company Number: JP-ACTELION-A-CH2012-72232

PATIENT
  Age: 13 Year
  Sex: Female
  Weight: 42.3 kg

DRUGS (4)
  1. BERAPROST SODIUM [Concomitant]
     Active Substance: BERAPROST SODIUM
  2. TRACLEER [Suspect]
     Active Substance: BOSENTAN\BOSENTAN MONOHYDRATE
     Dosage: 125 MG, BID
     Route: 048
     Dates: start: 20131228
  3. TRACLEER [Suspect]
     Active Substance: BOSENTAN\BOSENTAN MONOHYDRATE
     Indication: PULMONARY ARTERIAL HYPERTENSION
     Dosage: 62.5 MG, BID
     Route: 048
     Dates: start: 20111206, end: 20131227
  4. ASPIRIN. [Suspect]
     Active Substance: ASPIRIN
     Indication: THROMBOSIS PROPHYLAXIS
     Dosage: 100 MG, QD
     Route: 048
     Dates: start: 20110916

REACTIONS (10)
  - Alanine aminotransferase increased [Recovered/Resolved]
  - Epistaxis [Recovered/Resolved]
  - Brain natriuretic peptide increased [Recovered/Resolved]
  - Anaemia [Recovered/Resolved]
  - Hepatic function abnormal [Recovered/Resolved]
  - Blood bilirubin increased [Recovered/Resolved]
  - Aspartate aminotransferase increased [Recovered/Resolved]
  - Polycythaemia [Recovered/Resolved]
  - Pulmonary hypertension [Recovered/Resolved]
  - White blood cell count increased [Recovered/Resolved]

NARRATIVE: CASE EVENT DATE: 20120228
